FAERS Safety Report 6011615-1 (Version None)
Quarter: 2008Q4

REPORT INFORMATION
  Report Type: 
  Country: None (occurrence: None)
  Receive Date: 20081218
  Receipt Date: 19960214
  Transmission Date: 20090506
  Serious: Yes (Death, Hospitalization)
  Sender: FDA-Public Use
  Company Number: FR-ROCHE-59172

PATIENT
  Age: 75 Year
  Sex: Male

DRUGS (1)
  1. ROFERON-A [Suspect]
     Route: 058
     Dates: start: 19931215, end: 19940115

REACTIONS (5)
  - ABNORMAL BEHAVIOUR [None]
  - AGITATION [None]
  - CONFUSIONAL STATE [None]
  - DEATH [None]
  - SUICIDAL IDEATION [None]
